FAERS Safety Report 6315523-8 (Version None)
Quarter: 2009Q3

REPORT INFORMATION
  Report Type: 
  Country: None (occurrence: None)
  Receive Date: 20090819
  Receipt Date: 20090807
  Transmission Date: 20100115
  Serious: Yes (Death, Other)
  Sender: FDA-Public Use
  Company Number: US-PFIZER INC-2009234938

PATIENT
  Sex: Male
  Weight: 82.553 kg

DRUGS (4)
  1. CHANTIX [Suspect]
     Indication: SMOKING CESSATION THERAPY
     Dosage: 1 UNK, UNK
     Route: 048
     Dates: start: 20080114, end: 20090519
  2. CHANTIX [Suspect]
     Indication: TOBACCO USER
  3. LIPITOR [Concomitant]
     Indication: BLOOD CHOLESTEROL INCREASED
     Dosage: 20 MG, 1X/DAY
     Route: 048
     Dates: start: 20080101, end: 20090101
  4. IBUPROFEN [Concomitant]
     Dosage: 600 MG, 4X/DAY
     Dates: start: 20080101, end: 20090101

REACTIONS (6)
  - ABNORMAL DREAMS [None]
  - AGITATION [None]
  - BRONCHITIS [None]
  - COMPLETED SUICIDE [None]
  - DEPRESSION [None]
  - WEIGHT DECREASED [None]
